FAERS Safety Report 4778509-0 (Version None)
Quarter: 2005Q3

REPORT INFORMATION
  Report Type: 
  Country: None (occurrence: None)
  Receive Date: 20050926
  Receipt Date: 20050419
  Transmission Date: 20060218
  Serious: Yes (Hospitalization, Other)
  Sender: FDA-Public Use
  Company Number: US-MERCK-0504USA03715

PATIENT
  Age: 73 Year
  Sex: Male
  Weight: 102 kg

DRUGS (29)
  1. VIOXX [Suspect]
     Indication: PAIN IN EXTREMITY
     Route: 048
     Dates: start: 20020718, end: 20040801
  2. VIOXX [Suspect]
     Indication: OSTEOARTHRITIS
     Route: 048
     Dates: start: 20020718, end: 20040801
  3. ASPIRIN [Concomitant]
     Route: 065
  4. BACITRACIN [Concomitant]
     Route: 065
  5. CASANTHRANOL [Concomitant]
     Route: 065
  6. CEPHALEXIN [Concomitant]
     Route: 065
  7. ELECTROLYTES (UNSPECIFIED) [Concomitant]
     Route: 065
  8. CYCLOBENZAPRINE HYDROCHLORIDE [Concomitant]
     Route: 065
  9. DONEPEZIL HYDROCHLORIDE [Concomitant]
     Route: 065
  10. ETODOLAC [Concomitant]
     Route: 065
  11. FLUNISOLIDE [Concomitant]
     Route: 065
  12. GABAPENTIN [Concomitant]
     Route: 065
  13. ACETAMINOPHEN AND HYDROCODONE BITARTRATE [Concomitant]
     Route: 065
  14. ISOSORBIDE DINITRATE [Concomitant]
     Route: 065
  15. PRINIVIL [Concomitant]
     Route: 048
  16. OXYBUTYNIN CHLORIDE [Concomitant]
     Route: 065
  17. POTASSIUM CHLORIDE [Concomitant]
     Route: 065
  18. QUETIAPINE FUMARATE [Concomitant]
     Route: 065
  19. RANITIDINE HYDROCHLORIDE [Concomitant]
     Route: 065
  20. SALSALATE [Concomitant]
     Route: 065
  21. SENNOSIDES [Concomitant]
     Route: 065
  22. TERAZOSIN HYDROCHLORIDE [Concomitant]
     Route: 065
  23. [THERAPY UNSPECIFIED] [Concomitant]
     Route: 065
  24. AUGMENTIN [Concomitant]
     Route: 065
  25. PLAVIX [Concomitant]
     Route: 065
  26. TROLAMINE SALICYLATE [Concomitant]
     Route: 065
  27. SALMETEROL [Concomitant]
     Route: 065
  28. ATENOLOL [Concomitant]
     Indication: HYPERTENSION
     Route: 065
     Dates: start: 20021101, end: 20030209
  29. ATENOLOL [Concomitant]
     Indication: ANGINA PECTORIS
     Route: 065
     Dates: start: 20021101, end: 20030209

REACTIONS (29)
  - ACUTE MYOCARDIAL INFARCTION [None]
  - ANGINA UNSTABLE [None]
  - AORTIC ANEURYSM [None]
  - AORTIC DILATATION [None]
  - BLOOD CHOLESTEROL INCREASED [None]
  - CAROTID ARTERY STENOSIS [None]
  - CHEST PAIN [None]
  - CONSTIPATION [None]
  - CORONARY ARTERY DISEASE [None]
  - CORONARY ARTERY OCCLUSION [None]
  - DEPRESSED MOOD [None]
  - DIFFICULTY IN WALKING [None]
  - DYSPNOEA [None]
  - FALL [None]
  - HYPERTENSION [None]
  - INCONTINENCE [None]
  - INTERMITTENT CLAUDICATION [None]
  - IRRITABILITY [None]
  - MOOD ALTERED [None]
  - MYOCARDIAL INFARCTION [None]
  - MYOCARDIAL ISCHAEMIA [None]
  - NAUSEA [None]
  - OEDEMA [None]
  - RENAL FAILURE CHRONIC [None]
  - SCAR [None]
  - SKIN ULCER [None]
  - VENOUS INSUFFICIENCY [None]
  - VENTRICULAR HYPOKINESIA [None]
  - WHEEZING [None]
